FAERS Safety Report 26151407 (Version 2)
Quarter: 2025Q4

REPORT INFORMATION
  Report Type: Spontaneous
  Country: US (occurrence: US)
  Receive Date: 20251212
  Receipt Date: 20251224
  Transmission Date: 20260117
  Serious: No
  Sender: ROCHE
  Company Number: US-ROCHE-10000457658

PATIENT
  Age: 4 Year
  Sex: Female
  Weight: 15.88 kg

DRUGS (3)
  1. HEMLIBRA [Suspect]
     Active Substance: EMICIZUMAB-KXWH
     Indication: Factor VIII deficiency
     Dosage: INITIAL LOADING DOSES (60 MG - 4 VIALS )
     Route: 058
     Dates: start: 20251110
  2. HEMLIBRA [Suspect]
     Active Substance: EMICIZUMAB-KXWH
     Dosage: MAINTENANCE DOSE 105 MG
     Route: 058
     Dates: start: 20251208
  3. XYNTHA [Concomitant]
     Active Substance: MOROCTOCOG ALFA

REACTIONS (2)
  - Rash [Not Recovered/Not Resolved]
  - Pruritus [Unknown]

NARRATIVE: CASE EVENT DATE: 20251209
